FAERS Safety Report 23390387 (Version 1)
Quarter: 2024Q1

REPORT INFORMATION
  Report Type: Spontaneous
  Country: US (occurrence: US)
  Receive Date: 20240111
  Receipt Date: 20240111
  Transmission Date: 20240409
  Serious: Yes (Life-Threatening, Hospitalization, Other)
  Sender: FDA-Public Use
  Company Number: US-SUN PHARMACEUTICAL INDUSTRIES LTD-2023R1-426737

PATIENT
  Age: 73 Year
  Sex: Male

DRUGS (1)
  1. GLIPIZIDE [Suspect]
     Active Substance: GLIPIZIDE
     Indication: Type 2 diabetes mellitus
     Dosage: UNK (TWO TABLETS TWICE A DAY)
     Route: 065

REACTIONS (4)
  - Product administration error [Unknown]
  - Extra dose administered [Unknown]
  - Hypoglycaemia [Unknown]
  - Disease recurrence [Unknown]
